FAERS Safety Report 5744021-5 (Version None)
Quarter: 2008Q2

REPORT INFORMATION
  Report Type: 
  Country: None (occurrence: None)
  Receive Date: 20080516
  Receipt Date: 20080501
  Transmission Date: 20081010
  Serious: Yes (Disabling)
  Sender: FDA-Public Use
  Company Number: 2008AL003734

PATIENT
  Age: 46 Year

DRUGS (5)
  1. CARBAMAZEPINE [Suspect]
     Indication: EPILEPSY
     Dosage: PO
     Route: 048
  2. GABAPENTINE TABLETS, 800 MG (PUREPAC) GABAPENTINE TABLETS, 800 MG (PUR [Suspect]
     Indication: EPILEPSY
  3. LAMOTRIGINE [Concomitant]
  4. TOPIRAMATE [Concomitant]
  5. ACETAMINOPHEN [Concomitant]

REACTIONS (5)
  - DEPOSIT EYE [None]
  - MACULAR DEGENERATION [None]
  - MACULOPATHY [None]
  - RETINAL DEPOSITS [None]
  - VISUAL ACUITY REDUCED [None]
